FAERS Safety Report 10258514 (Version 1)
Quarter: 2014Q2

REPORT INFORMATION
  Report Type: Spontaneous
  Country: TW (occurrence: TW)
  Receive Date: 20140625
  Receipt Date: 20140625
  Transmission Date: 20141212
  Serious: Yes (Death, Other)
  Sender: FDA-Public Use
  Company Number: TW-ACTELION-A-CH2014-100742

PATIENT
  Age: 30 Year
  Sex: Male

DRUGS (2)
  1. TRACLEER [Suspect]
     Indication: PULMONARY ARTERIAL HYPERTENSION
     Dosage: 125 MG, BID
     Route: 048
  2. TRACLEER [Suspect]
     Dosage: 62.5 MG, BID
     Route: 048
     Dates: start: 2006

REACTIONS (4)
  - Pulmonary arterial hypertension [Fatal]
  - Disease progression [Fatal]
  - Oedema [Fatal]
  - Pneumonia [Unknown]
